FAERS Safety Report 6878143-2 (Version None)
Quarter: 2010Q2

REPORT INFORMATION
  Report Type: 
  Country: None (occurrence: None)
  Receive Date: 20100617
  Receipt Date: 20090616
  Transmission Date: 20101027
  Serious: Yes (Hospitalization)
  Sender: FDA-Public Use
  Company Number: PHO-2009-012

PATIENT
  Age: 67 Year
  Sex: Male

DRUGS (2)
  1. PHOTOFRIN [Suspect]
     Indication: LIP AND/OR ORAL CAVITY CANCER
  2. CAPTOPRIL [Concomitant]

REACTIONS (2)
  - PHARYNGEAL HAEMORRHAGE [None]
  - PROCEDURAL COMPLICATION [None]
